FAERS Safety Report 7782425-X (Version None)
Quarter: 2011Q3

REPORT INFORMATION
  Report Type: 
  Country: None (occurrence: None)
  Receive Date: 20110928
  Receipt Date: 20110919
  Transmission Date: 20111222
  Serious: Yes (Other)
  Sender: FDA-Public Use
  Company Number: DE-AMGEN-DEUSP2011048766

PATIENT
  Age: 57 Year
  Sex: Female

DRUGS (6)
  1. FORMOTEROL FUMARATE [Suspect]
     Dosage: UNK
  2. CALCIUM CARBONATE [Suspect]
     Dosage: UNK
  3. METFORMIN HCL [Suspect]
     Dosage: UNK
  4. OMEPRAZOLE [Suspect]
     Dosage: UNK
  5. ALBUTEROL [Suspect]
     Dosage: UNK
  6. ENBREL [Suspect]
     Indication: PRODUCT USED FOR UNKNOWN INDICATION
     Dosage: 50 MG, 2X/WEEK
     Dates: start: 20110101

REACTIONS (1)
  - HAEMANGIOMA [None]
